FAERS Safety Report 18315511 (Version 2)
Quarter: 2021Q2

REPORT INFORMATION
  Report Type: Other
  Country: FR (occurrence: FR)
  Receive Date: 20200926
  Receipt Date: 20210514
  Transmission Date: 20210717
  Serious: Yes (Life-Threatening)
  Sender: FDA-Public Use
  Company Number: FR-SERVIER-S20009459

PATIENT

DRUGS (5)
  1. TN UNSPECIFIED (METHOTREXATE) [Suspect]
     Active Substance: METHOTREXATE
     Indication: ACUTE LYMPHOCYTIC LEUKAEMIA
     Dosage: 12 MG, UNKNOWN
     Route: 037
     Dates: start: 20200811, end: 20200821
  2. ENTONOX [Suspect]
     Active Substance: NITROUS OXIDE\OXYGEN
     Indication: ANALGESIC THERAPY
     Dosage: NOT REPORTED
     Route: 055
  3. TN UNSPECIFIED [DEXAMETHASONE] [Suspect]
     Active Substance: DEXAMETHASONE
     Indication: ACUTE LYMPHOCYTIC LEUKAEMIA
     Dosage: 6 MG/M2
     Route: 048
     Dates: start: 20200808, end: 20200831
  4. ONCASPAR [Suspect]
     Active Substance: PEGASPARGASE
     Indication: ACUTE LYMPHOCYTIC LEUKAEMIA
     Dosage: 975 IU, UNKNOWN
     Route: 041
     Dates: start: 20200810, end: 20200824
  5. TN UNSPECIFIED [VINCRISTINE SULFATE] [Suspect]
     Active Substance: VINCRISTINE SULFATE
     Indication: ACUTE LYMPHOCYTIC LEUKAEMIA
     Dosage: 1.15 MG, UNKNOWN
     Route: 041
     Dates: start: 20200806, end: 20200827

REACTIONS (2)
  - Brain abscess [Recovered/Resolved with Sequelae]
  - Leukoencephalopathy [Recovered/Resolved with Sequelae]

NARRATIVE: CASE EVENT DATE: 20200909
